FAERS Safety Report 5894986-6 (Version None)
Quarter: 2008Q3

REPORT INFORMATION
  Report Type: 
  Country: None (occurrence: None)
  Receive Date: 20080924
  Receipt Date: 20080912
  Transmission Date: 20090109
  Serious: Yes (Other)
  Sender: FDA-Public Use
  Company Number: AU-WYE-H06047708

PATIENT
  Sex: Male

DRUGS (10)
  1. AMIODARONE HCL [Suspect]
     Dosage: UNSPECIFIED
  2. FRUSEMIDE [Suspect]
  3. ALLOPURINOL [Concomitant]
  4. DIABEX [Concomitant]
     Indication: TYPE 2 DIABETES MELLITUS
  5. PRAVACHOL [Concomitant]
  6. COVERSYL [Concomitant]
  7. WARFARIN SODIUM [Concomitant]
  8. DIGOXIN [Concomitant]
  9. LANTUS [Suspect]
     Indication: TYPE 2 DIABETES MELLITUS
     Route: 058
     Dates: start: 20080601
  10. DILATREND [Concomitant]

REACTIONS (1)
  - HYPOGLYCAEMIA [None]
